FAERS Safety Report 24773936 (Version 2)
Quarter: 2025Q1

REPORT INFORMATION
  Report Type: Report from Study
  Country: US (occurrence: US)
  Receive Date: 20241225
  Receipt Date: 20250204
  Transmission Date: 20250408
  Serious: No
  Sender: ACADIA PHARMACEUTICALS
  Company Number: US-ACADIA PHARMACEUTICALS INC.-ACA-2024-TRF-008520

PATIENT
  Sex: Female

DRUGS (3)
  1. DAYBUE [Suspect]
     Active Substance: TROFINETIDE
     Indication: Rett syndrome
  2. DAYBUE [Suspect]
     Active Substance: TROFINETIDE
     Dosage: 12 MILLILITER, BID
  3. DAYBUE [Suspect]
     Active Substance: TROFINETIDE
     Dosage: 50 MILLILITER, BID

REACTIONS (3)
  - Diarrhoea [Recovered/Resolved]
  - Faeces soft [Not Recovered/Not Resolved]
  - Diarrhoea [Not Recovered/Not Resolved]
